FAERS Safety Report 12584850 (Version 14)
Quarter: 2017Q1

REPORT INFORMATION
  Report Type: Spontaneous
  Country: US (occurrence: US)
  Receive Date: 20160722
  Receipt Date: 20170227
  Transmission Date: 20170428
  Serious: Yes (Death, Hospitalization)
  Sender: FDA-Public Use
  Company Number: US-ACTELION-A-NJ2016-139588

PATIENT
  Age: 56 Year
  Sex: Female
  Weight: 90.25 kg

DRUGS (8)
  1. VELETRI [Suspect]
     Active Substance: EPOPROSTENOL
     Dosage: 17.5 NG/KG/PER MIN
     Route: 042
  2. NOVOLOG [Concomitant]
     Active Substance: INSULIN ASPART
  3. KCL [Concomitant]
     Active Substance: POTASSIUM CHLORIDE
  4. LASIX [Concomitant]
     Active Substance: FUROSEMIDE
  5. SPIRONOLACTONE. [Concomitant]
     Active Substance: SPIRONOLACTONE
  6. LETAIRIS [Concomitant]
     Active Substance: AMBRISENTAN
  7. VELETRI [Suspect]
     Active Substance: EPOPROSTENOL
     Indication: PULMONARY HYPERTENSION
     Dosage: 9.5 NG/KG, PER MIN
     Route: 042
     Dates: start: 20160712
  8. HUMULIN NOS [Concomitant]
     Active Substance: INSULIN HUMAN

REACTIONS (40)
  - Death [Fatal]
  - Fall [Unknown]
  - Decreased appetite [Unknown]
  - Hyperventilation [Unknown]
  - Platelet count decreased [Unknown]
  - Abdominal pain [Unknown]
  - Faeces discoloured [Unknown]
  - Drug dose omission [Unknown]
  - Asthenia [Unknown]
  - Mental status changes [Unknown]
  - Dyspnoea [Unknown]
  - Memory impairment [Unknown]
  - Blood pressure abnormal [Unknown]
  - Hepatic failure [Unknown]
  - Packed red blood cell transfusion [Unknown]
  - Back pain [Unknown]
  - Peripheral swelling [Unknown]
  - Retching [Unknown]
  - Headache [Unknown]
  - Portopulmonary hypertension [Unknown]
  - Tachycardia [Unknown]
  - Complication associated with device [Unknown]
  - Feeling cold [Unknown]
  - Pain in jaw [Unknown]
  - Palpitations [Unknown]
  - Pain in extremity [Unknown]
  - Application site pruritus [Unknown]
  - Dizziness [Unknown]
  - Abdominal pain upper [Unknown]
  - Nausea [Unknown]
  - Application site erythema [Unknown]
  - Vision blurred [Unknown]
  - Sluggishness [Unknown]
  - Gastrointestinal haemorrhage [Unknown]
  - Haemorrhagic anaemia [Unknown]
  - Melaena [Unknown]
  - Thrombosis in device [Unknown]
  - Treatment noncompliance [Unknown]
  - Somnolence [Unknown]
  - Device alarm issue [Unknown]

NARRATIVE: CASE EVENT DATE: 20160905
